FAERS Safety Report 4996413-X (Version None)
Quarter: 2006Q2

REPORT INFORMATION
  Report Type: 
  Country: None (occurrence: None)
  Receive Date: 20060505
  Receipt Date: 20060425
  Transmission Date: 20061013
  Serious: Yes (Hospitalization)
  Sender: FDA-Public Use
  Company Number: 2006055507

PATIENT
  Age: 56 Year
  Sex: Female

DRUGS (7)
  1. AMLODIPINE [Suspect]
     Indication: HYPERTENSION
     Dosage: DAILY INTERVAL: DAILY, ORAL
     Route: 048
  2. FLUVASTATIN (FLUVASTATIN) [Suspect]
     Indication: ILL-DEFINED DISORDER
     Dosage: ORAL
     Route: 048
  3. ACEBUTOLOL [Concomitant]
  4. HYDROCHLOROTHIAZIDE [Concomitant]
  5. RAMIPRIL [Concomitant]
  6. METFORMIN [Concomitant]
  7. GLIMEPIRIDE [Concomitant]

REACTIONS (7)
  - DRUG TOXICITY [None]
  - DYSPEPSIA [None]
  - HEPATIC STEATOSIS [None]
  - HEPATOMEGALY [None]
  - SYNCOPE [None]
  - TONGUE DISORDER [None]
  - VOMITING [None]
